FAERS Safety Report 16308450 (Version 1)
Quarter: 2019Q2

REPORT INFORMATION
  Report Type: Spontaneous
  Country: US (occurrence: US)
  Receive Date: 20190408
  Receipt Date: 20190408
  Transmission Date: 20190711
  Serious: No
  Sender: FDA-Public Use
  Company Number: None

PATIENT
  Age: 39 Year
  Sex: Female

DRUGS (1)
  1. BOTOX [Suspect]
     Active Substance: ONABOTULINUMTOXINA
     Indication: BLADDER DYSFUNCTION
     Dosage: ?          OTHER FREQUENCY:EVERY 3 MONTHS;OTHER ROUTE:INTRADETRUSOR?

REACTIONS (2)
  - Fatigue [None]
  - Gait inability [None]

NARRATIVE: CASE EVENT DATE: 20190201
